FAERS Safety Report 9556014 (Version 1)
Quarter: 2013Q3

REPORT INFORMATION
  Report Type: Spontaneous
  Country: US (occurrence: None)
  Receive Date: 20130724
  Receipt Date: 20130724
  Transmission Date: 20140515
  Serious: Yes (Other)
  Sender: FDA-Public Use
  Company Number: PHEH2013US007147

PATIENT
  Age: 43 Year
  Sex: Female

DRUGS (2)
  1. GILENYA [Suspect]
     Indication: MULTIPLE SCLEROSIS
     Route: 048
     Dates: start: 20130518
  2. GABAPENTIN [Concomitant]

REACTIONS (5)
  - Multiple sclerosis [None]
  - Stress [None]
  - Peripheral coldness [None]
  - Musculoskeletal pain [None]
  - Myalgia [None]
